FAERS Safety Report 8542013-4 (Version None)
Quarter: 2012Q3

REPORT INFORMATION
  Report Type: 
  Country: None (occurrence: None)
  Receive Date: 20120726
  Receipt Date: 20111004
  Transmission Date: 20120928
  Serious: No
  Sender: FDA-Public Use
  Company Number: US-ASTRAZENECA-2011SE59561

PATIENT
  Age: 46 Year
  Sex: Male
  Weight: 65.8 kg

DRUGS (2)
  1. SEROQUEL XR [Suspect]
     Indication: DEPRESSION
     Route: 048
  2. DIAZEPAM [Concomitant]
     Indication: STRESS

REACTIONS (19)
  - DECREASED APPETITE [None]
  - PSYCHOMOTOR HYPERACTIVITY [None]
  - INSOMNIA [None]
  - ARTHRITIS [None]
  - FLUSHING [None]
  - ANGER [None]
  - TREMOR [None]
  - PANIC ATTACK [None]
  - INCORRECT DOSE ADMINISTERED [None]
  - DRUG DOSE OMISSION [None]
  - MYOPATHY [None]
  - PRURITUS [None]
  - TENDONITIS [None]
  - AGITATION [None]
  - MUSCLE SPASMS [None]
  - HYPOAESTHESIA [None]
  - HYPERHIDROSIS [None]
  - FIBROMYALGIA [None]
  - HOT FLUSH [None]
